FAERS Safety Report 20533438 (Version 20)
Quarter: 2025Q3

REPORT INFORMATION
  Report Type: Report from Study
  Country: US (occurrence: US)
  Receive Date: 20220301
  Receipt Date: 20250807
  Transmission Date: 20251020
  Serious: Yes (Other)
  Sender: TAKEDA
  Company Number: US-PAREXEL-2021-KAM-US003632

PATIENT
  Age: 66 Year
  Sex: Female
  Weight: 66 kg

DRUGS (29)
  1. GLASSIA [Suspect]
     Active Substance: .ALPHA.1-PROTEINASE INHIBITOR HUMAN
     Indication: Alpha-1 antitrypsin deficiency
     Dosage: UNK UNK, 1/WEEK
  2. GLASSIA [Suspect]
     Active Substance: .ALPHA.1-PROTEINASE INHIBITOR HUMAN
     Indication: Colon cancer
     Dosage: 4200 MILLIGRAM, 1/WEEK
  3. GLASSIA [Suspect]
     Active Substance: .ALPHA.1-PROTEINASE INHIBITOR HUMAN
     Dosage: 70 MILLIGRAM/KILOGRAM, 1/WEEK
  4. EPINEPHRINE [Concomitant]
     Active Substance: EPINEPHRINE
  5. SODIUM CHLORIDE [Concomitant]
     Active Substance: SODIUM CHLORIDE
  6. ZYRTEC [Concomitant]
     Active Substance: CETIRIZINE HYDROCHLORIDE
  7. KETOROLAC TROMETHAMINE [Concomitant]
     Active Substance: KETOROLAC TROMETHAMINE
  8. EZETIMIBE [Concomitant]
     Active Substance: EZETIMIBE
  9. SODIUM CHLORIDE [Concomitant]
     Active Substance: SODIUM CHLORIDE
  10. LANTUS SOLOSTAR [Concomitant]
     Active Substance: INSULIN GLARGINE
  11. LIDOCAINE [Concomitant]
     Active Substance: LIDOCAINE
  12. BIOFREEZE [Concomitant]
     Active Substance: MENTHOL
  13. DOXYCYCLINE HYCLATE [Concomitant]
     Active Substance: DOXYCYCLINE HYCLATE
  14. DIPHENHYDRAMINE HYDROCHLORIDE [Concomitant]
     Active Substance: DIPHENHYDRAMINE HYDROCHLORIDE
  15. TYLENOL EXTRA STRENGTH [Concomitant]
     Active Substance: ACETAMINOPHEN
  16. ATROVENT HFA [Concomitant]
     Active Substance: IPRATROPIUM BROMIDE
  17. METHENAMINE HIPPURATE [Concomitant]
     Active Substance: METHENAMINE HIPPURATE
  18. TYLENOL [Concomitant]
     Active Substance: ACETAMINOPHEN
  19. OMEPRAZOLE [Concomitant]
     Active Substance: OMEPRAZOLE
  20. LOSARTAN POTASSIUM [Concomitant]
     Active Substance: LOSARTAN POTASSIUM
  21. CEFADROXIL [Concomitant]
     Active Substance: CEFADROXIL
  22. ROBITUSSIN COUGH AND CHEST CONGESTION DM [Concomitant]
     Active Substance: DEXTROMETHORPHAN HYDROBROMIDE\GUAIFENESIN
  23. HUMALOG [Concomitant]
     Active Substance: INSULIN LISPRO
  24. MIRALAX [Concomitant]
     Active Substance: POLYETHYLENE GLYCOL 3350
  25. NOVOLOG [Concomitant]
     Active Substance: INSULIN ASPART
  26. NORVASC [Concomitant]
     Active Substance: AMLODIPINE BESYLATE
  27. MACROBID [Concomitant]
     Active Substance: NITROFURANTOIN\NITROFURANTOIN MONOHYDRATE
  28. ALBUTEROL SULFATE [Concomitant]
     Active Substance: ALBUTEROL SULFATE
  29. AMLODIPINE BESYLATE [Concomitant]
     Active Substance: AMLODIPINE BESYLATE

REACTIONS (28)
  - Bronchiectasis [Unknown]
  - Diarrhoea haemorrhagic [Unknown]
  - Pneumonia [Unknown]
  - Basal cell carcinoma [Unknown]
  - Polyp [Unknown]
  - Oropharyngeal pain [Unknown]
  - Infusion site streaking [Unknown]
  - Dysuria [Unknown]
  - Pancreatic cyst [Unknown]
  - COVID-19 [Recovered/Resolved]
  - Skin infection [Unknown]
  - Productive cough [Unknown]
  - Sinus disorder [Unknown]
  - Intentional product use issue [Unknown]
  - Nasopharyngitis [Unknown]
  - Seasonal allergy [Unknown]
  - Body temperature increased [Unknown]
  - Vitreous floaters [Unknown]
  - Eye haemorrhage [Unknown]
  - Visual impairment [Unknown]
  - Melanocytic naevus [Unknown]
  - Sinusitis [Unknown]
  - Back pain [Unknown]
  - Bronchitis [Not Recovered/Not Resolved]
  - Upper respiratory tract infection [Unknown]
  - Cough [Unknown]
  - Urinary tract infection [Unknown]
  - Headache [Unknown]

NARRATIVE: CASE EVENT DATE: 20211221
